FAERS Safety Report 5018044-8 (Version None)
Quarter: 2006Q2

REPORT INFORMATION
  Report Type: 
  Country: None (occurrence: None)
  Receive Date: 20060602
  Receipt Date: 20060602
  Transmission Date: 20061013
  Serious: Yes (Hospitalization)
  Sender: FDA-Public Use
  Company Number: None

PATIENT
  Age: 81 Year
  Sex: Female

DRUGS (1)
  1. PROCRIT [Suspect]
     Indication: ANAEMIA
     Dosage: 10,000 UNITS THREE TIMES A WEEK  SQ   POSSIBLY ONE MONTH
     Route: 058

REACTIONS (1)
  - DEEP VEIN THROMBOSIS [None]
